FAERS Safety Report 18009529 (Version 4)
Quarter: 2022Q1

REPORT INFORMATION
  Report Type: Spontaneous
  Country: US (occurrence: US)
  Receive Date: 20200710
  Receipt Date: 20220121
  Transmission Date: 20220423
  Serious: No
  Sender: FDA-Public Use
  Company Number: US-PFIZER INC-2020264922

PATIENT
  Age: 34 Year
  Sex: Female

DRUGS (3)
  1. XELJANZ XR [Suspect]
     Active Substance: TOFACITINIB CITRATE
     Dosage: 22 MG
     Dates: start: 20200611, end: 202006
  2. XELJANZ XR [Suspect]
     Active Substance: TOFACITINIB CITRATE
     Dosage: 22 MG
     Dates: start: 20200625
  3. XELJANZ XR [Suspect]
     Active Substance: TOFACITINIB CITRATE
     Dosage: 22 MG
     Dates: start: 20210701

REACTIONS (4)
  - Headache [Unknown]
  - Thirst [Unknown]
  - Blood pressure increased [Unknown]
  - Blood urine present [Unknown]
